FAERS Safety Report 11689741 (Version 1)
Quarter: 2015Q4

REPORT INFORMATION
  Report Type: Spontaneous
  Country: US (occurrence: None)
  Receive Date: 20151030
  Receipt Date: 20151030
  Transmission Date: 20160304
  Serious: Yes (Hospitalization)
  Sender: FDA-Public Use
  Company Number: None

PATIENT
  Age: 75 Year
  Sex: Male
  Weight: 66.1 kg

DRUGS (5)
  1. PRBC [Concomitant]
  2. DAPSONE. [Concomitant]
     Active Substance: DAPSONE
  3. IBUPROFEN. [Concomitant]
     Active Substance: IBUPROFEN
  4. RUXOLITINIB [Suspect]
     Active Substance: RUXOLITINIB
     Indication: CHRONIC MYELOID LEUKAEMIA
     Route: 048
     Dates: start: 20141218, end: 20150927
  5. HYDROCODONE BITARTRATE AND ACETAMINOPHEN [Concomitant]
     Active Substance: ACETAMINOPHEN\HYDROCODONE BITARTRATE

REACTIONS (4)
  - Anaemia [None]
  - Nausea [None]
  - Abdominal pain upper [None]
  - Splenic haematoma [None]

NARRATIVE: CASE EVENT DATE: 20150927
